FAERS Safety Report 22085936 (Version 1)
Quarter: 2023Q1

REPORT INFORMATION
  Report Type: Spontaneous
  Country: US (occurrence: US)
  Receive Date: 20230310
  Receipt Date: 20230310
  Transmission Date: 20230418
  Serious: No
  Sender: FDA-Public Use
  Company Number: US-BIOGEN-2023BI01192461

PATIENT
  Sex: Female

DRUGS (1)
  1. TECFIDERA [Suspect]
     Active Substance: DIMETHYL FUMARATE
     Indication: Multiple sclerosis
     Route: 050
     Dates: start: 20140303, end: 20230201

REACTIONS (3)
  - Multiple sclerosis relapse [Unknown]
  - Stress [Unknown]
  - Illness [Unknown]

NARRATIVE: CASE EVENT DATE: 20230101
